FAERS Safety Report 24538617 (Version 4)
Quarter: 2025Q2

REPORT INFORMATION
  Report Type: Report from Study
  Country: US (occurrence: US)
  Receive Date: 20241023
  Receipt Date: 20250623
  Transmission Date: 20250716
  Serious: Yes (Hospitalization)
  Sender: TAKEDA
  Company Number: US-TAKEDA-US201937291

PATIENT
  Age: 66 Year
  Sex: Female

DRUGS (7)
  1. ICATIBANT [Suspect]
     Active Substance: ICATIBANT ACETATE
     Indication: Immune system disorder
  2. ICATIBANT [Suspect]
     Active Substance: ICATIBANT ACETATE
  3. ICATIBANT [Suspect]
     Active Substance: ICATIBANT ACETATE
  4. ICATIBANT [Suspect]
     Active Substance: ICATIBANT ACETATE
  5. TAKHZYRO [Suspect]
     Active Substance: LANADELUMAB-FLYO
     Indication: Immune system disorder
     Dosage: UNK UNK, 2/MONTH
     Dates: start: 2021
  6. TAKHZYRO [Suspect]
     Active Substance: LANADELUMAB-FLYO
     Dosage: 300 MILLIGRAM, Q2WEEKS
     Dates: start: 202405
  7. TAKHZYRO [Suspect]
     Active Substance: LANADELUMAB-FLYO

REACTIONS (5)
  - Hereditary angioedema [Recovered/Resolved]
  - Product dose omission issue [Recovered/Resolved]
  - Insurance issue [Unknown]
  - Weight increased [Unknown]
  - Illness [Unknown]

NARRATIVE: CASE EVENT DATE: 20191030
